FAERS Safety Report 23462891 (Version 1)
Quarter: 2024Q1

REPORT INFORMATION
  Report Type: Spontaneous
  Country: US (occurrence: None)
  Receive Date: 20240131
  Receipt Date: 20240131
  Transmission Date: 20240410
  Serious: Yes (Other)
  Sender: FDA-Public Use
  Company Number: None

PATIENT
  Age: 50 Year
  Sex: Female
  Weight: 76.5 kg

DRUGS (5)
  1. ACETAZOLAMIDE [Suspect]
     Active Substance: ACETAZOLAMIDE
     Indication: Diabetic eye disease
     Dosage: OTHER QUANTITY : 1 CAPSULE(S);?
     Route: 048
     Dates: start: 20220101, end: 20240112
  2. CLONIDINE [Concomitant]
     Active Substance: CLONIDINE
  3. nifedydipine [Concomitant]
  4. CARVEDILOL [Concomitant]
     Active Substance: CARVEDILOL
  5. FERROUS SULFATE [Concomitant]
     Active Substance: FERROUS SULFATE

REACTIONS (8)
  - Dry eye [None]
  - Depression [None]
  - Anxiety [None]
  - Dry skin [None]
  - Skin irritation [None]
  - Paraesthesia [None]
  - Eye disorder [None]
  - Paraesthesia [None]

NARRATIVE: CASE EVENT DATE: 20230501
